FAERS Safety Report 23836934 (Version 8)
Quarter: 2024Q3

REPORT INFORMATION
  Report Type: Spontaneous
  Country: US (occurrence: US)
  Receive Date: 20240509
  Receipt Date: 20240919
  Transmission Date: 20241017
  Serious: Yes (Hospitalization, Other)
  Sender: BIOVITRUM
  Company Number: US-BIOVITRUM-2024-US-006291

PATIENT
  Age: 76 Year
  Sex: Male

DRUGS (2)
  1. VONJO [Suspect]
     Active Substance: PACRITINIB
     Indication: Myelofibrosis
     Dosage: TWICE A DAY
     Route: 048
  2. VONJO [Suspect]
     Active Substance: PACRITINIB
     Indication: Myelodysplastic syndrome
     Dosage: TWICE A DAY?(TAKE 2 CAPSULES EVERY MORNING AND 1 CAPSULE IN THE EVENING)
     Route: 048
     Dates: start: 20240606

REACTIONS (20)
  - Neuropathy peripheral [Unknown]
  - Cardiac failure congestive [Unknown]
  - Off label use [Not Recovered/Not Resolved]
  - Feeling cold [Unknown]
  - Ageusia [Unknown]
  - Fatigue [Unknown]
  - Insomnia [Unknown]
  - Asthenia [Unknown]
  - Pain [Unknown]
  - Gastrointestinal disorder [Unknown]
  - Platelet count abnormal [Unknown]
  - Haemoglobin abnormal [Unknown]
  - Pruritus [Unknown]
  - Diarrhoea [Unknown]
  - Product dose omission issue [Unknown]
  - Rash [Unknown]
  - Dehydration [Unknown]
  - Cold sweat [Unknown]
  - Hypotension [Unknown]
  - Condition aggravated [Unknown]

NARRATIVE: CASE EVENT DATE: 20240606
